FAERS Safety Report 13505929 (Version 1)
Quarter: 2017Q2

REPORT INFORMATION
  Report Type: Spontaneous
  Country: US (occurrence: US)
  Receive Date: 20170502
  Receipt Date: 20170502
  Transmission Date: 20170830
  Serious: No
  Sender: FDA-Public Use
  Company Number: US-ROCHE-1392620

PATIENT
  Sex: Female

DRUGS (4)
  1. FLUOROURACIL. [Concomitant]
     Active Substance: FLUOROURACIL
     Indication: CHEMOTHERAPY
     Route: 042
  2. IRINOTECAN [Concomitant]
     Active Substance: IRINOTECAN
     Dosage: CHEMOTHERAPY
     Route: 042
  3. AVASTIN [Suspect]
     Active Substance: BEVACIZUMAB
     Indication: COLORECTAL CANCER
     Dosage: CHEMOTHERAPY
     Route: 042
  4. FOLINIC ACID [Concomitant]
     Active Substance: LEUCOVORIN
     Route: 042

REACTIONS (4)
  - Swelling face [Recovered/Resolved]
  - Headache [Recovered/Resolved]
  - Flushing [Recovered/Resolved]
  - Peripheral swelling [Recovered/Resolved]

NARRATIVE: CASE EVENT DATE: 2014
